FAERS Safety Report 16851724 (Version 7)
Quarter: 2019Q4

REPORT INFORMATION
  Report Type: Report from Study
  Country: US (occurrence: US)
  Receive Date: 20190925
  Receipt Date: 20191224
  Transmission Date: 20200122
  Serious: Yes (Hospitalization, Other)
  Sender: FDA-Public Use
  Company Number: US-ACTELION-A-US2019-190429

PATIENT
  Sex: Female
  Weight: 47.62 kg

DRUGS (6)
  1. ADCIRCA [Concomitant]
     Active Substance: TADALAFIL
  2. OPSUMIT [Suspect]
     Active Substance: MACITENTAN
     Indication: PULMONARY ARTERIAL HYPERTENSION
     Dosage: 10 MG, QD
     Route: 048
  3. REMODULIN [Suspect]
     Active Substance: TREPROSTINIL
     Indication: PRODUCT USED FOR UNKNOWN INDICATION
     Route: 065
  4. UPTRAVI [Suspect]
     Active Substance: SELEXIPAG
     Dosage: 600 MCG
     Route: 048
  5. UPTRAVI [Suspect]
     Active Substance: SELEXIPAG
     Indication: PULMONARY ARTERIAL HYPERTENSION
     Dosage: 800 MCG, BID
     Route: 048
  6. UPTRAVI [Suspect]
     Active Substance: SELEXIPAG
     Dosage: 1200 MCG, BID
     Route: 048

REACTIONS (25)
  - Fluid retention [Unknown]
  - Scleroderma [Unknown]
  - Laryngitis [Unknown]
  - Abdominal cavity drainage [Unknown]
  - Tinnitus [Unknown]
  - Ulcer [Unknown]
  - Rash [Unknown]
  - Abdominal pain upper [Unknown]
  - Nausea [Unknown]
  - Therapy change [Unknown]
  - Cardiac failure [Unknown]
  - Gait inability [Unknown]
  - Arthralgia [Unknown]
  - Restless legs syndrome [Unknown]
  - Frequent bowel movements [Unknown]
  - Dyspnoea [Unknown]
  - Pain [Unknown]
  - Pulmonary hypertension [Unknown]
  - Feeling abnormal [Unknown]
  - Headache [Recovered/Resolved]
  - Pain in extremity [Unknown]
  - Myalgia [Unknown]
  - Neuralgia [Unknown]
  - Diarrhoea [Unknown]
  - Abdominal distension [Unknown]
